FAERS Safety Report 6388582-4 (Version None)
Quarter: 2009Q4

REPORT INFORMATION
  Report Type: 
  Country: None (occurrence: None)
  Receive Date: 20091005
  Receipt Date: 20090925
  Transmission Date: 20100525
  Serious: Yes (Hospitalization)
  Sender: FDA-Public Use
  Company Number: JP-ABBOTT-09P-087-0597063-00

PATIENT
  Sex: Female
  Weight: 52.6 kg

DRUGS (10)
  1. HUMIRA [Suspect]
     Indication: JUVENILE ARTHRITIS
     Route: 058
     Dates: start: 20081010
  2. HUMIRA [Suspect]
     Dates: start: 20090925
  3. METHOTREXATE [Concomitant]
     Indication: JUVENILE ARTHRITIS
     Route: 048
     Dates: start: 20080101, end: 20090905
  4. METHOTREXATE [Concomitant]
     Route: 048
     Dates: start: 20090925
  5. IBUPROFEN [Concomitant]
     Indication: JUVENILE ARTHRITIS
     Route: 048
     Dates: start: 20090717, end: 20090910
  6. IBUPROFEN [Concomitant]
     Route: 048
     Dates: start: 20090915
  7. FOLIC ACID [Concomitant]
     Indication: FOLATE DEFICIENCY
     Route: 048
     Dates: start: 20080620, end: 20090906
  8. FOLIC ACID [Concomitant]
     Indication: PROPHYLAXIS
  9. FERROMIA [Concomitant]
     Indication: IRON DEFICIENCY ANAEMIA
     Route: 048
     Dates: start: 20090619, end: 20090910
  10. FERROMIA [Concomitant]
     Dates: start: 20090915

REACTIONS (1)
  - PYREXIA [None]
